FAERS Safety Report 15415738 (Version 2)
Quarter: 2018Q3

REPORT INFORMATION
  Report Type: Spontaneous
  Country: JP (occurrence: JP)
  Receive Date: 20180922
  Receipt Date: 20180926
  Transmission Date: 20181010
  Serious: Yes (Other)
  Sender: FDA-Public Use
  Company Number: JP-JNJFOC-20180924105

PATIENT
  Sex: Male

DRUGS (2)
  1. RIUP 1% [Suspect]
     Active Substance: MINOXIDIL
     Route: 061
  2. RIUP 1% [Suspect]
     Active Substance: MINOXIDIL
     Indication: PRODUCT USED FOR UNKNOWN INDICATION
     Route: 061

REACTIONS (2)
  - Application site pruritus [Unknown]
  - Hepatic cancer [Not Recovered/Not Resolved]
